FAERS Safety Report 22001850 (Version 3)
Quarter: 2023Q2

REPORT INFORMATION
  Report Type: Report from Study
  Country: US (occurrence: US)
  Receive Date: 20230216
  Receipt Date: 20230406
  Transmission Date: 20230722
  Serious: Yes (Other)
  Sender: FDA-Public Use
  Company Number: US-BAYER-2023A014203

PATIENT
  Age: 51 Year
  Sex: Female

DRUGS (6)
  1. STIVARGA [Suspect]
     Active Substance: REGORAFENIB
     Indication: Colon cancer
     Dosage: 80 MG, QD
     Route: 048
     Dates: start: 20230128, end: 20230206
  2. STIVARGA [Suspect]
     Active Substance: REGORAFENIB
     Indication: Colon cancer
     Dosage: 120 MG, QD
     Route: 048
     Dates: start: 20230207
  3. STIVARGA [Suspect]
     Active Substance: REGORAFENIB
     Indication: Colon cancer
     Dosage: 160 MG, QD
     Route: 048
     Dates: start: 20230226
  4. DULOXETINE [Concomitant]
     Active Substance: DULOXETINE
     Dosage: UNK
  5. ESZOPICLONE [Concomitant]
     Active Substance: ESZOPICLONE
     Dosage: 1MG AS NEEDED
  6. UREA [Concomitant]
     Active Substance: UREA
     Indication: Burning sensation
     Dosage: UNK

REACTIONS (20)
  - Mobility decreased [Recovering/Resolving]
  - Decreased appetite [Not Recovered/Not Resolved]
  - Abdominal pain upper [Not Recovered/Not Resolved]
  - Anxiety [Not Recovered/Not Resolved]
  - Panic reaction [Not Recovered/Not Resolved]
  - Depression [Not Recovered/Not Resolved]
  - Insomnia [Not Recovered/Not Resolved]
  - Somnolence [Recovering/Resolving]
  - Neuropathy peripheral [Not Recovered/Not Resolved]
  - Burning sensation [Recovering/Resolving]
  - Feeling abnormal [Not Recovered/Not Resolved]
  - Diarrhoea [Recovered/Resolved]
  - Impaired work ability [Not Recovered/Not Resolved]
  - Off label use [None]
  - Bladder irritation [Not Recovered/Not Resolved]
  - Stress [Not Recovered/Not Resolved]
  - Irritability [Recovered/Resolved]
  - Mood altered [Recovered/Resolved]
  - Diarrhoea [Not Recovered/Not Resolved]
  - Product dose omission in error [None]

NARRATIVE: CASE EVENT DATE: 20230128
